FAERS Safety Report 8053755-1 (Version None)
Quarter: 2012Q1

REPORT INFORMATION
  Report Type: 
  Country: None (occurrence: None)
  Receive Date: 20120118
  Receipt Date: 20120112
  Transmission Date: 20120608
  Serious: Yes (Hospitalization)
  Sender: FDA-Public Use
  Company Number: FR-PFIZER INC-2011126085

PATIENT
  Age: 71 Year
  Sex: Female

DRUGS (11)
  1. IMIPENEM AND CILASTATIN SODIUM [Suspect]
     Dosage: UNK
     Route: 042
     Dates: start: 20110217, end: 20110223
  2. TARGOCID [Suspect]
     Dosage: 400 MG, 2X/DAY
     Route: 042
     Dates: start: 20110214, end: 20110222
  3. STABLON [Concomitant]
     Dosage: UNK
     Dates: start: 20050101
  4. CALCIUM CARBONATE [Concomitant]
  5. CLADRIBINE [Suspect]
     Indication: HAIRY CELL LEUKAEMIA
     Dosage: 8.5 MG, 1X/DAY
     Route: 058
     Dates: start: 20110207, end: 20110211
  6. TERCIAN [Concomitant]
  7. CLINDAMYCIN HCL [Suspect]
     Indication: TOXOPLASMOSIS
     Dosage: 600 MG, 3X/DAY
     Route: 048
     Dates: start: 20110218, end: 20110222
  8. BACTRIM [Suspect]
     Dosage: 1 DOSE FORM 3 TIMES PER WEEK
     Route: 048
     Dates: start: 20110131, end: 20110213
  9. VALACYCLOVIR HYDROCHLORIDE [Suspect]
     Dosage: 500 MG, 2X/DAY
     Route: 048
     Dates: start: 20110131, end: 20110221
  10. CIPROFLOXACIN [Suspect]
     Dosage: 500 MG, 2X/DAY
     Route: 048
     Dates: start: 20110217, end: 20110222
  11. ACETAMINOPHEN W/ PROPOXYPHENE HCL [Concomitant]

REACTIONS (1)
  - DRUG ERUPTION [None]
